FAERS Safety Report 7474902-6 (Version None)
Quarter: 2011Q2

REPORT INFORMATION
  Report Type: 
  Country: None (occurrence: None)
  Receive Date: 20110505
  Receipt Date: 20110427
  Transmission Date: 20111010
  Serious: Yes (Hospitalization)
  Sender: FDA-Public Use
  Company Number: LTI2011A00103

PATIENT
  Age: 59 Year
  Sex: Female

DRUGS (1)
  1. ACTOS [Suspect]
     Indication: TYPE 2 DIABETES MELLITUS
     Route: 048
     Dates: start: 20090101, end: 20110310

REACTIONS (8)
  - OEDEMA PERIPHERAL [None]
  - RETINOPATHY [None]
  - DIABETES MELLITUS INADEQUATE CONTROL [None]
  - WEIGHT INCREASED [None]
  - BLOOD PRESSURE SYSTOLIC INCREASED [None]
  - MICROALBUMINURIA [None]
  - VASODILATATION [None]
  - PROTEINURIA [None]
